FAERS Safety Report 5416459-7 (Version None)
Quarter: 2007Q3

REPORT INFORMATION
  Report Type: 
  Country: None (occurrence: None)
  Receive Date: 20070816
  Receipt Date: 20070809
  Transmission Date: 20080115
  Serious: Yes (Hospitalization)
  Sender: FDA-Public Use
  Company Number: US-BAYER-200712655BWH

PATIENT
  Sex: Male

DRUGS (2)
  1. AVELOX [Suspect]
     Indication: PNEUMONIA
     Route: 048
  2. ROCEPHIN [Suspect]

REACTIONS (4)
  - ABDOMINAL PAIN [None]
  - COMA [None]
  - JAUNDICE [None]
  - LABORATORY TEST ABNORMAL [None]
